FAERS Safety Report 6762772-0 (Version None)
Quarter: 2010Q2

REPORT INFORMATION
  Report Type: 
  Country: None (occurrence: None)
  Receive Date: 20100609
  Receipt Date: 20100602
  Transmission Date: 20101027
  Serious: Yes (Hospitalization)
  Sender: FDA-Public Use
  Company Number: B0648257A

PATIENT
  Sex: Female
  Weight: 65.5 kg

DRUGS (6)
  1. ARIXTRA [Suspect]
     Dosage: 5MG PER DAY
     Route: 058
     Dates: start: 20100217, end: 20100222
  2. PLAVIX [Suspect]
     Dosage: 75MG PER DAY
     Route: 048
     Dates: start: 20100217
  3. KARDEGIC [Suspect]
     Dosage: 160MG PER DAY
     Route: 048
     Dates: start: 20100217
  4. AMLOR [Suspect]
     Dosage: 5MG PER DAY
     Route: 048
     Dates: start: 20100217
  5. TAHOR [Suspect]
     Dosage: 20MG PER DAY
     Route: 048
     Dates: start: 20100217
  6. LASIX [Suspect]
     Dosage: 20MG PER DAY
     Route: 048
     Dates: start: 20100217

REACTIONS (3)
  - HAEMATOMA [None]
  - OFF LABEL USE [None]
  - OVERDOSE [None]
